FAERS Safety Report 11328914 (Version 1)
Quarter: 2015Q3

REPORT INFORMATION
  Report Type: Spontaneous
  Country: TR (occurrence: TR)
  Receive Date: 20150801
  Receipt Date: 20150801
  Transmission Date: 20151125
  Serious: Yes (Hospitalization)
  Sender: FDA-Public Use
  Company Number: TR-AUROBINDO-AUR-APL-2015-06778

PATIENT
  Age: 74 Year
  Sex: Male

DRUGS (1)
  1. LEVETIRACTAM [Suspect]
     Active Substance: LEVETIRACETAM
     Indication: EPILEPSY
     Dosage: 500 MG, TWO TIMES A DAY
     Route: 065

REACTIONS (6)
  - Hyponatraemia [Recovered/Resolved]
  - Pallor [Recovered/Resolved]
  - Condition aggravated [Recovered/Resolved]
  - Inappropriate antidiuretic hormone secretion [Recovered/Resolved]
  - Cardiac failure congestive [Recovered/Resolved]
  - Oedema peripheral [Recovered/Resolved]
